FAERS Safety Report 7590733-0 (Version None)
Quarter: 2011Q3

REPORT INFORMATION
  Report Type: 
  Country: None (occurrence: None)
  Receive Date: 20110705
  Receipt Date: 20110620
  Transmission Date: 20111222
  Serious: Yes (Hospitalization)
  Sender: FDA-Public Use
  Company Number: PHHO2011AU10765

PATIENT
  Sex: Male
  Weight: 85.2 kg

DRUGS (3)
  1. NO TREATMENT RECEIVED [Suspect]
  2. DIABEX S.R. [Concomitant]
     Indication: DIABETES MELLITUS
  3. EXFORGE [Suspect]
     Indication: HYPERTENSION
     Dosage: 160/10 MG, UNK
     Route: 048
     Dates: start: 20110127, end: 20110506

REACTIONS (2)
  - RHINORRHOEA [None]
  - PALATAL OEDEMA [None]
